FAERS Safety Report 9162102 (Version 1)
Quarter: 2013Q1

REPORT INFORMATION
  Report Type: Spontaneous
  Country: FR (occurrence: None)
  Receive Date: 20130222
  Receipt Date: 20130222
  Transmission Date: 20140127
  Serious: Yes (Life-Threatening)
  Sender: FDA-Public Use
  Company Number: 1607770

PATIENT
  Age: 75 Year
  Sex: 0

DRUGS (2)
  1. CARBOPLATIN [Suspect]
     Indication: TRANSITIONAL CELL CARCINOMA
     Dosage: UNKNOWN, UNKNOWN, INTRAVENOUS DRIP?
     Dates: start: 20121205, end: 20121227
  2. GEMZAR [Suspect]
     Indication: TRANSITIONAL CELL CARCINOMA
     Dosage: UNKNOWN, UNKNOWN, INTRAVENOUS DRIP?
     Dates: start: 20121205, end: 20121227

REACTIONS (1)
  - Guillain-Barre syndrome [None]
